FAERS Safety Report 21895100 (Version 5)
Quarter: 2024Q3

REPORT INFORMATION
  Report Type: Report from Study
  Country: CL (occurrence: CL)
  Receive Date: 20230122
  Receipt Date: 20240701
  Transmission Date: 20241016
  Serious: Yes (Hospitalization)
  Sender: JOHNSON AND JOHNSON
  Company Number: CL-JNJFOC-20230123455

PATIENT
  Age: 41 Year
  Sex: Female
  Weight: 58 kg

DRUGS (3)
  1. STELARA [Suspect]
     Active Substance: USTEKINUMAB
     Indication: Crohn^s disease
     Dosage: 90.00 MG/ML
     Route: 058
     Dates: start: 20220922
  2. STELARA [Suspect]
     Active Substance: USTEKINUMAB
     Dosage: LAST DRUG APPLICATION: 18-AUG-2023
     Route: 058
     Dates: start: 2022
  3. STELARA [Suspect]
     Active Substance: USTEKINUMAB
     Route: 058
     Dates: start: 20230915

REACTIONS (12)
  - Erythema [Unknown]
  - Localised infection [Unknown]
  - Iritis [Unknown]
  - Respiratory disorder [Unknown]
  - Crohn^s disease [Not Recovered/Not Resolved]
  - Dizziness [Unknown]
  - Myalgia [Unknown]
  - Arthralgia [Unknown]
  - Influenza like illness [Unknown]
  - Hypersomnia [Unknown]
  - Drug ineffective [Unknown]
  - Off label use [Unknown]

NARRATIVE: CASE EVENT DATE: 20220101
